FAERS Safety Report 5961567-5 (Version None)
Quarter: 2008Q4

REPORT INFORMATION
  Report Type: 
  Country: None (occurrence: None)
  Receive Date: 20081121
  Receipt Date: 20081113
  Transmission Date: 20090506
  Serious: Yes (Life-Threatening)
  Sender: FDA-Public Use
  Company Number: B0545752A

PATIENT
  Age: 41 Year
  Sex: Male

DRUGS (8)
  1. ZIAGEN [Suspect]
     Indication: HIV INFECTION
     Dosage: 600MG PER DAY
     Route: 048
     Dates: start: 20081010, end: 20081019
  2. KALETRA [Suspect]
     Indication: HIV INFECTION
     Dosage: 250MG PER DAY
     Route: 065
     Dates: start: 20081010, end: 20081019
  3. VIREAD [Suspect]
     Indication: HIV INFECTION
     Dosage: 245MG PER DAY
     Route: 048
     Dates: start: 20081010, end: 20081019
  4. TRAMADOL HCL [Concomitant]
  5. DELTACORTENE [Concomitant]
  6. LORAZEPAM [Concomitant]
  7. NEXIUM [Concomitant]
  8. UNKNOWN DRUG [Concomitant]

REACTIONS (1)
  - MYOCARDIAL INFARCTION [None]
